FAERS Safety Report 6662118-2 (Version None)
Quarter: 2010Q1

REPORT INFORMATION
  Report Type: 
  Country: None (occurrence: None)
  Receive Date: 20100331
  Receipt Date: 20100326
  Transmission Date: 20100710
  Serious: Yes (Other)
  Sender: FDA-Public Use
  Company Number: DE-PFIZER INC-2010038748

PATIENT
  Sex: Male

DRUGS (1)
  1. XALATAN [Suspect]
     Dosage: 1 DROP IN EACH EYE EVERY EVENING
     Route: 047

REACTIONS (2)
  - DYSPNOEA [None]
  - VISUAL ACUITY REDUCED [None]
